FAERS Safety Report 6688757-0 (Version None)
Quarter: 2010Q2

REPORT INFORMATION
  Report Type: 
  Country: None (occurrence: None)
  Receive Date: 20100420
  Receipt Date: 20100324
  Transmission Date: 20101027
  Serious: Yes (Other)
  Sender: FDA-Public Use
  Company Number: B0648240A

PATIENT
  Age: 45 Year
  Sex: Male
  Weight: 85 kg

DRUGS (4)
  1. WELLBUTRIN [Suspect]
     Indication: DRUG USE FOR UNKNOWN INDICATION
     Dosage: 150MG PER DAY
     Route: 048
     Dates: start: 20100223, end: 20100304
  2. LITAREX [Concomitant]
     Dosage: 564MG FOUR TIMES PER DAY
     Route: 048
  3. RITALIN [Concomitant]
     Dosage: 10MG FOUR TIMES PER DAY
     Route: 048
  4. CLONAZEPAM [Concomitant]
     Dosage: 1MG TWICE PER DAY
     Route: 048

REACTIONS (3)
  - ANXIETY [None]
  - DEPRESSION [None]
  - SELF-INJURIOUS IDEATION [None]
